FAERS Safety Report 18490100 (Version 1)
Quarter: 2020Q4

REPORT INFORMATION
  Report Type: Spontaneous
  Country: ES (occurrence: ES)
  Receive Date: 20201111
  Receipt Date: 20201111
  Transmission Date: 20210114
  Serious: Yes (Other)
  Sender: FDA-Public Use
  Company Number: ES-ASTELLAS-2020US039782

PATIENT
  Age: 69 Year
  Sex: Male

DRUGS (26)
  1. REGADENOSON [Suspect]
     Active Substance: REGADENOSON
     Indication: SCAN MYOCARDIAL PERFUSION
     Dosage: 400 ?G, TOTAL DOSE (SINGLE)
     Route: 040
  2. REGADENOSON [Suspect]
     Active Substance: REGADENOSON
     Indication: GATED SINGLE PHOTON EMISSION COMPUTERISED TOMOGRAM
  3. MYOVIEW [TETROFOSMIN;ZINC CHLORIDE] [Suspect]
     Active Substance: TETROFOSMIN\ZINC CHLORIDE
     Indication: SCAN MYOCARDIAL PERFUSION
     Dosage: 296 MBQ, TOTAL DOSE (SINGLE)
     Route: 042
  4. FORMOTEROL [Concomitant]
     Active Substance: FORMOTEROL
     Indication: PRODUCT USED FOR UNKNOWN INDICATION
     Dosage: UNK UNK, UNKNOWN FREQ.
     Route: 065
  5. SALBUTAMOL [Concomitant]
     Active Substance: ALBUTEROL
     Indication: PRODUCT USED FOR UNKNOWN INDICATION
     Dosage: UNK UNK, UNKNOWN FREQ.
     Route: 065
  6. TIOTROPIUM BROMIDE [Concomitant]
     Active Substance: TIOTROPIUM BROMIDE
     Indication: PRODUCT USED FOR UNKNOWN INDICATION
     Dosage: UNK UNK, UNKNOWN FREQ.
     Route: 065
  7. OXYGEN. [Concomitant]
     Active Substance: OXYGEN
     Indication: PRODUCT USED FOR UNKNOWN INDICATION
     Dosage: UNK UNK, UNKNOWN FREQ.
     Route: 065
  8. REGADENOSON [Suspect]
     Active Substance: REGADENOSON
     Indication: ISCHAEMIC CARDIOMYOPATHY
  9. REGADENOSON [Suspect]
     Active Substance: REGADENOSON
     Indication: SCAN MYOCARDIAL PERFUSION
     Dosage: 400 ?G, TOTAL DOSE (SINGLE)
     Route: 040
  10. REGADENOSON [Suspect]
     Active Substance: REGADENOSON
     Indication: GATED SINGLE PHOTON EMISSION COMPUTERISED TOMOGRAM
  11. REGADENOSON [Suspect]
     Active Substance: REGADENOSON
     Indication: GATED SINGLE PHOTON EMISSION COMPUTERISED TOMOGRAM
  12. MYOVIEW [TETROFOSMIN;ZINC CHLORIDE] [Suspect]
     Active Substance: TETROFOSMIN\ZINC CHLORIDE
     Indication: GATED SINGLE PHOTON EMISSION COMPUTERISED TOMOGRAM
  13. TECHNETIUM TC 99M [Concomitant]
     Active Substance: TECHNETIUM TC-99M
     Indication: PRODUCT USED FOR UNKNOWN INDICATION
     Dosage: UNK UNK, UNKNOWN FREQ.
     Route: 065
  14. ACETYLSALICYLIC ACID [Concomitant]
     Active Substance: ASPIRIN
     Indication: PRODUCT USED FOR UNKNOWN INDICATION
     Dosage: UNK UNK, UNKNOWN FREQ.
     Route: 065
  15. NEBIVOLOL. [Concomitant]
     Active Substance: NEBIVOLOL
     Indication: PRODUCT USED FOR UNKNOWN INDICATION
     Dosage: UNK UNK, UNKNOWN FREQ.
     Route: 065
  16. REGADENOSON [Suspect]
     Active Substance: REGADENOSON
     Indication: SCAN MYOCARDIAL PERFUSION
     Dosage: 400 ?G, TOTAL DOSE (SINGLE)
     Route: 040
  17. REGADENOSON [Suspect]
     Active Substance: REGADENOSON
     Indication: ISCHAEMIC CARDIOMYOPATHY
  18. MYOVIEW [TETROFOSMIN;ZINC CHLORIDE] [Suspect]
     Active Substance: TETROFOSMIN\ZINC CHLORIDE
     Indication: ISCHAEMIC CARDIOMYOPATHY
  19. SALINE [SODIUM CHLORIDE] [Concomitant]
     Active Substance: SODIUM CHLORIDE
     Indication: PRODUCT USED FOR UNKNOWN INDICATION
     Dosage: UNK UNK, UNKNOWN FREQ.
     Route: 065
  20. ATORVASTATIN [Concomitant]
     Active Substance: ATORVASTATIN
     Indication: PRODUCT USED FOR UNKNOWN INDICATION
     Dosage: UNK UNK, UNKNOWN FREQ.
     Route: 065
  21. FLUTICASONE PROPIONATE. [Concomitant]
     Active Substance: FLUTICASONE PROPIONATE
     Indication: PRODUCT USED FOR UNKNOWN INDICATION
     Dosage: UNK UNK, UNKNOWN FREQ.
     Route: 065
  22. REGADENOSON [Suspect]
     Active Substance: REGADENOSON
     Indication: SCAN MYOCARDIAL PERFUSION
     Dosage: 400 ?G, TOTAL DOSE (SINGLE)
     Route: 040
  23. REGADENOSON [Suspect]
     Active Substance: REGADENOSON
     Indication: ISCHAEMIC CARDIOMYOPATHY
  24. REGADENOSON [Suspect]
     Active Substance: REGADENOSON
     Indication: ISCHAEMIC CARDIOMYOPATHY
  25. REGADENOSON [Suspect]
     Active Substance: REGADENOSON
     Indication: GATED SINGLE PHOTON EMISSION COMPUTERISED TOMOGRAM
  26. IVABRADINE [Concomitant]
     Active Substance: IVABRADINE
     Indication: PRODUCT USED FOR UNKNOWN INDICATION
     Dosage: UNK UNK, UNKNOWN FREQ.
     Route: 065

REACTIONS (1)
  - Sinus node dysfunction [Recovered/Resolved]
